FAERS Safety Report 7523562-4 (Version None)
Quarter: 2011Q2

REPORT INFORMATION
  Report Type: 
  Country: None (occurrence: None)
  Receive Date: 20110603
  Receipt Date: 20110525
  Transmission Date: 20111010
  Serious: Yes (Other)
  Sender: FDA-Public Use
  Company Number: US-ASTRAZENECA-2011SE32311

PATIENT
  Age: 44 Year
  Sex: Male

DRUGS (2)
  1. TOPROL-XL [Suspect]
     Indication: CARDIAC DISORDER
     Route: 048
  2. CRESTOR [Suspect]
     Indication: CARDIAC DISORDER
     Route: 048

REACTIONS (4)
  - ACCIDENT AT WORK [None]
  - MYOCARDIAL INFARCTION [None]
  - INCORRECT DOSE ADMINISTERED [None]
  - STENT PLACEMENT [None]
